FAERS Safety Report 5795018-0 (Version None)
Quarter: 2008Q2

REPORT INFORMATION
  Report Type: 
  Country: None (occurrence: None)
  Receive Date: 20080630
  Receipt Date: 20080327
  Transmission Date: 20081010
  Serious: No
  Sender: FDA-Public Use
  Company Number: US-BRISTOL-MYERS SQUIBB COMPANY-14104285

PATIENT
  Age: 44 Year
  Sex: Female
  Weight: 73 kg

DRUGS (8)
  1. ORENCIA [Suspect]
     Indication: RHEUMATOID ARTHRITIS
     Dosage: LAST INFUSION TAKEN ON 19DEC07
     Route: 042
     Dates: start: 20071001, end: 20071201
  2. NEXIUM [Concomitant]
  3. FOLIC ACID [Concomitant]
  4. PREDNISONE [Concomitant]
  5. TOPROL-XL [Concomitant]
  6. MAGNESIUM OXIDE [Concomitant]
  7. ARAVA [Concomitant]
  8. ASPIRIN [Concomitant]

REACTIONS (1)
  - DERMATITIS PSORIASIFORM [None]
